FAERS Safety Report 12273922 (Version 1)
Quarter: 2016Q2

REPORT INFORMATION
  Report Type: Spontaneous
  Country: US (occurrence: US)
  Receive Date: 20160415
  Receipt Date: 20160415
  Transmission Date: 20160815
  Serious: No
  Sender: FDA-Public Use
  Company Number: US-ALLERGAN-1505309US

PATIENT
  Sex: Female

DRUGS (5)
  1. LUMIGAN [Suspect]
     Active Substance: BIMATOPROST
     Indication: GLAUCOMA
     Dosage: 1 DOP IN EACH EYE AT NIGHT TIME
     Route: 047
  2. LISINOPRIL. [Concomitant]
     Active Substance: LISINOPRIL
     Indication: HYPERTENSION
     Dosage: 10 MG, QD
  3. PRILOSEC [Concomitant]
     Active Substance: OMEPRAZOLE MAGNESIUM
     Indication: GASTROOESOPHAGEAL REFLUX DISEASE
     Dosage: UNK, QAM
  4. MIRALAX [Concomitant]
     Active Substance: POLYETHYLENE GLYCOL 3350
  5. OCUVITE [Concomitant]
     Active Substance: VITAMINS
     Indication: EYE DISORDER

REACTIONS (2)
  - Eye colour change [Not Recovered/Not Resolved]
  - Growth of eyelashes [Recovering/Resolving]
